FAERS Safety Report 6127161-0 (Version None)
Quarter: 2009Q1

REPORT INFORMATION
  Report Type: 
  Country: None (occurrence: None)
  Receive Date: 20090320
  Receipt Date: 20090313
  Transmission Date: 20090719
  Serious: Yes (Hospitalization)
  Sender: FDA-Public Use
  Company Number: FR-ABBOTT-09P-056-0562387-00

PATIENT
  Sex: Male

DRUGS (3)
  1. MICROPAKINE [Suspect]
     Indication: EPILEPSY
     Route: 048
  2. EPITOMAX [Suspect]
     Indication: EPILEPSY
     Route: 048
     Dates: start: 20081101
  3. RIVOTRIL [Suspect]
     Indication: EPILEPSY
     Route: 048

REACTIONS (2)
  - DYSKINESIA [None]
  - PYREXIA [None]
